FAERS Safety Report 5912522-2 (Version None)
Quarter: 2008Q4

REPORT INFORMATION
  Report Type: 
  Country: None (occurrence: None)
  Receive Date: 20081006
  Receipt Date: 20080924
  Transmission Date: 20090506
  Serious: Yes (Other)
  Sender: FDA-Public Use
  Company Number: 2008-03572

PATIENT

DRUGS (1)
  1. VELCADE [Suspect]
     Indication: MULTIPLE MYELOMA
     Dosage: 1.3 MG/M2

REACTIONS (4)
  - ANAEMIA [None]
  - LEUKOPENIA [None]
  - OSTEOSYNTHESIS [None]
  - THROMBOCYTOPENIA [None]
